FAERS Safety Report 7720152-5 (Version None)
Quarter: 2011Q3

REPORT INFORMATION
  Report Type: 
  Country: None (occurrence: None)
  Receive Date: 20110826
  Receipt Date: 20110826
  Transmission Date: 20111222
  Serious: No
  Sender: FDA-Public Use
  Company Number: None

PATIENT
  Sex: Female
  Weight: 63.5036 kg

DRUGS (1)
  1. BONIVA [Suspect]
     Indication: OSTEOPOROSIS
     Dosage: ONCE A MONTH
     Dates: start: 20080101, end: 20110101

REACTIONS (3)
  - FEMUR FRACTURE [None]
  - NO THERAPEUTIC RESPONSE [None]
  - FALL [None]
